FAERS Safety Report 5983651-2 (Version None)
Quarter: 2008Q4

REPORT INFORMATION
  Report Type: 
  Country: None (occurrence: None)
  Receive Date: 20081205
  Receipt Date: 20081205
  Transmission Date: 20090506
  Serious: Yes (Hospitalization)
  Sender: FDA-Public Use
  Company Number: None

PATIENT
  Sex: Female
  Weight: 108 kg

DRUGS (3)
  1. CARBOPLATIN [Suspect]
     Dosage: 485 MG
  2. TAXOL [Suspect]
     Dosage: 350 MG
  3. HEPARIN [Concomitant]

REACTIONS (12)
  - ALPHA HAEMOLYTIC STREPTOCOCCAL INFECTION [None]
  - BACILLUS INFECTION [None]
  - BLOOD CULTURE POSITIVE [None]
  - CARDIAC ARREST [None]
  - DEEP VEIN THROMBOSIS [None]
  - DIARRHOEA [None]
  - ENTEROBACTER INFECTION [None]
  - FEBRILE NEUTROPENIA [None]
  - HAEMOPTYSIS [None]
  - HYPOTENSION [None]
  - SINUS TACHYCARDIA [None]
  - STREPTOCOCCAL INFECTION [None]
